FAERS Safety Report 18736897 (Version 4)
Quarter: 2021Q4

REPORT INFORMATION
  Report Type: Report from Study
  Country: US (occurrence: US)
  Receive Date: 20210113
  Receipt Date: 20211118
  Transmission Date: 20220303
  Serious: Yes (Death, Life-Threatening, Hospitalization, Other)
  Sender: FDA-Public Use
  Company Number: US-ABBVIE-21K-163-3728965-00

PATIENT
  Age: 74 Year
  Sex: Female
  Weight: 64.92 kg

DRUGS (17)
  1. IMBRUVICA [Suspect]
     Active Substance: IBRUTINIB
     Indication: Chronic lymphocytic leukaemia
     Route: 048
     Dates: start: 20200325, end: 20201114
  2. IMBRUVICA [Suspect]
     Active Substance: IBRUTINIB
     Route: 048
     Dates: start: 20161009, end: 20180724
  3. ALBUTEROL [Concomitant]
     Active Substance: ALBUTEROL
     Indication: Bronchospasm
     Dosage: INHALED-2 PUFFS-BID
     Dates: start: 20201204, end: 20210110
  4. NORVASC [Concomitant]
     Active Substance: AMLODIPINE BESYLATE
     Indication: Hypertension
     Route: 048
     Dates: start: 20201204, end: 20210110
  5. VITAMIN D3 [Concomitant]
     Active Substance: CHOLECALCIFEROL
     Indication: Supplementation therapy
     Dosage: IN THE EVENING
     Route: 048
     Dates: start: 20201204, end: 20210110
  6. DIPHENHYDRAMINE [Concomitant]
     Active Substance: DIPHENHYDRAMINE
     Indication: Insomnia
     Dosage: 50 MG BY MOUTH AS NEEDED FOR INSOMNIA
     Route: 048
     Dates: start: 20201204, end: 20210110
  7. LOVENOX [Concomitant]
     Active Substance: ENOXAPARIN SODIUM
     Indication: Pulmonary embolism
     Dosage: 70 MG SUBCUTANEOUSLY EVERY 12 HOURS
     Route: 058
     Dates: start: 20201204, end: 20210110
  8. INSULIN NOS [Concomitant]
     Active Substance: INSULIN NOS
     Indication: Blood glucose increased
     Dosage: AS DIRECTED
     Dates: start: 20201204, end: 20210110
  9. METOPROLOL [Concomitant]
     Active Substance: METOPROLOL
     Indication: Hypertension
     Dosage: 25 MG ORALLY EVERY DAY
     Route: 048
     Dates: start: 20201204, end: 20210110
  10. METOPROLOL [Concomitant]
     Active Substance: METOPROLOL
     Indication: Atrial fibrillation
  11. PREDNISONE [Concomitant]
     Active Substance: PREDNISONE
     Indication: Product used for unknown indication
     Dosage: 20 MG BY MOUTH 2 TIMES A DAY
     Route: 048
     Dates: start: 20201204, end: 20210110
  12. PROTONIX [Concomitant]
     Active Substance: PANTOPRAZOLE SODIUM
     Indication: Product used for unknown indication
  13. SPIRIVA [Concomitant]
     Active Substance: TIOTROPIUM BROMIDE MONOHYDRATE
     Indication: Product used for unknown indication
  14. SENNA [Concomitant]
     Active Substance: SENNA LEAF\SENNOSIDES\SENNOSIDES A AND B
     Indication: Product used for unknown indication
  15. BIOTIN [Concomitant]
     Active Substance: BIOTIN
     Indication: Vitamin supplementation
     Route: 048
  16. MAGNESIUM [Concomitant]
     Active Substance: MAGNESIUM
     Indication: Mineral supplementation
     Route: 048
  17. POTASSIUM GLUCONATE [Concomitant]
     Active Substance: POTASSIUM GLUCONATE
     Indication: Mineral supplementation
     Route: 048

REACTIONS (4)
  - Respiratory failure [Fatal]
  - Pneumonia [Not Recovered/Not Resolved]
  - Squamous cell carcinoma of lung [Recovered/Resolved with Sequelae]
  - Diffuse large B-cell lymphoma [Recovered/Resolved]

NARRATIVE: CASE EVENT DATE: 20180516
